FAERS Safety Report 8317899-9 (Version None)
Quarter: 2012Q2

REPORT INFORMATION
  Report Type: 
  Country: None (occurrence: None)
  Receive Date: 20120427
  Receipt Date: 20120419
  Transmission Date: 20120825
  Serious: Yes (Hospitalization)
  Sender: FDA-Public Use
  Company Number: US-BAYER-2011-098491

PATIENT
  Age: 28 Year
  Sex: Female
  Weight: 77.098 kg

DRUGS (7)
  1. YAZ [Suspect]
     Indication: CONTRACEPTION
     Dosage: UNK
     Dates: start: 20080101, end: 20100101
  2. LORTAB [Concomitant]
     Dosage: UNK
     Dates: start: 20081001
  3. NEXIUM [Concomitant]
     Dosage: 40 MG, DAILY
  4. LEVAQUIN [Concomitant]
     Dosage: 750 MG, DAILY
     Dates: start: 20081001
  5. AUGMENTIN '125' [Concomitant]
     Dosage: UNK
     Dates: start: 20081001
  6. YASMIN [Suspect]
     Indication: CONTRACEPTION
     Dosage: UNK
     Dates: start: 20030101, end: 20080101
  7. AMOX-K [Concomitant]
     Dosage: 875 MG, DAILY

REACTIONS (3)
  - CHOLECYSTITIS [None]
  - PAIN [None]
  - CHOLECYSTITIS CHRONIC [None]
